FAERS Safety Report 5523998-7 (Version None)
Quarter: 2007Q4

REPORT INFORMATION
  Report Type: 
  Country: None (occurrence: None)
  Receive Date: 20071121
  Receipt Date: 20071115
  Transmission Date: 20080405
  Serious: Yes (Other)
  Sender: FDA-Public Use
  Company Number: US-BRISTOL-MYERS SQUIBB COMPANY-13540695

PATIENT
  Age: 40 Year
  Sex: Female

DRUGS (9)
  1. ABATACEPT [Suspect]
     Indication: RHEUMATOID ARTHRITIS
     Route: 042
     Dates: start: 20060126
  2. ACYCLOVIR [Concomitant]
     Dates: start: 20001001
  3. CLARITIN [Concomitant]
     Dates: start: 20040430
  4. IBUPROFEN TABLETS [Concomitant]
     Dates: start: 20000101
  5. TRINESSA [Concomitant]
     Dates: start: 20060218
  6. CALCIUM [Concomitant]
     Dates: start: 20060420
  7. MAGNESIUM SULFATE [Concomitant]
     Dates: start: 20060420
  8. QUININE [Concomitant]
     Dates: start: 20060519
  9. PLAQUENIL [Concomitant]
     Dates: start: 20001001, end: 20060701

REACTIONS (1)
  - DEAFNESS [None]
